FAERS Safety Report 17527299 (Version 1)
Quarter: 2020Q1

REPORT INFORMATION
  Report Type: Spontaneous
  Country: US (occurrence: US)
  Receive Date: 20200303
  Receipt Date: 20200303
  Transmission Date: 20200409
  Serious: Yes (Hospitalization)
  Sender: FDA-Public Use
  Company Number: None

PATIENT
  Sex: Male

DRUGS (8)
  1. OMEPRAZOLE. [Concomitant]
     Active Substance: OMEPRAZOLE
  2. ROSUVASTATIN. [Concomitant]
     Active Substance: ROSUVASTATIN
  3. ASPIRIN LOW CALCIUM/D [Concomitant]
  4. RIBAVIRIN. [Concomitant]
     Active Substance: RIBAVIRIN
  5. SOFOSBUVIR/VELPATASVIR 400-100MG TAB [Suspect]
     Active Substance: SOFOSBUVIR\VELPATASVIR
     Indication: CHRONIC HEPATITIS C
     Route: 048
     Dates: start: 20191205
  6. FUROSEMIDE. [Concomitant]
     Active Substance: FUROSEMIDE
  7. SPIRONOLACT [Concomitant]
     Active Substance: SPIRONOLACTONE
  8. VITAMIN A+D [Concomitant]

REACTIONS (1)
  - Abdominal pain [None]
